FAERS Safety Report 16733694 (Version 1)
Quarter: 2019Q3

REPORT INFORMATION
  Report Type: Report from Study
  Country: IT (occurrence: IT)
  Receive Date: 20190823
  Receipt Date: 20190823
  Transmission Date: 20191005
  Serious: Yes (Other)
  Sender: FDA-Public Use
  Company Number: IT-ACCORD-152556

PATIENT
  Age: 17 Year
  Sex: Male

DRUGS (2)
  1. AMLODIPINE [Suspect]
     Active Substance: AMLODIPINE BESYLATE
     Indication: HYPERTENSION
     Route: 048
     Dates: start: 20190510
  2. PREDNISONE. [Concomitant]
     Active Substance: PREDNISONE
     Indication: POST STREPTOCOCCAL GLOMERULONEPHRITIS
     Route: 048
     Dates: start: 20190510

REACTIONS (3)
  - Blindness [Recovered/Resolved]
  - Vertigo [Recovered/Resolved]
  - Syncope [Recovered/Resolved]

NARRATIVE: CASE EVENT DATE: 20190601
